FAERS Safety Report 4390106-8 (Version None)
Quarter: 2004Q2

REPORT INFORMATION
  Report Type: 
  Country: None (occurrence: None)
  Receive Date: 20040630
  Receipt Date: 20040615
  Transmission Date: 20050107
  Serious: No
  Sender: FDA-Public Use
  Company Number: 2003AP01733

PATIENT
  Age: 76 Year
  Sex: Male

DRUGS (10)
  1. IRESSA [Suspect]
     Indication: LUNG SQUAMOUS CELL CARCINOMA STAGE IV
     Dosage: 250 MG DAILY; PO
     Route: 048
     Dates: start: 20021107, end: 20030307
  2. FLUTICASONE PROPIONATE [Concomitant]
  3. MUCOSOLVAN [Concomitant]
  4. MUCODYNE [Concomitant]
  5. ALESION [Concomitant]
  6. LANSOPRAZOLE [Concomitant]
  7. BLOPRESS [Concomitant]
  8. PRAVASTATIN SODIUM [Concomitant]
  9. CARDENALIN [Concomitant]
  10. NORVASC [Concomitant]

REACTIONS (4)
  - ANOREXIA [None]
  - DIARRHOEA [None]
  - NEPHROTIC SYNDROME [None]
  - RASH [None]
